FAERS Safety Report 6603360-6 (Version None)
Quarter: 2010Q1

REPORT INFORMATION
  Report Type: 
  Country: None (occurrence: None)
  Receive Date: 20100226
  Receipt Date: 20090226
  Transmission Date: 20100710
  Serious: No
  Sender: FDA-Public Use
  Company Number: A0770707A

PATIENT
  Age: 16 Year
  Sex: Female

DRUGS (2)
  1. VALTREX [Suspect]
     Indication: PROPHYLAXIS
     Dosage: 500MG TWICE PER DAY
     Route: 048
     Dates: start: 20081220, end: 20081227
  2. CEPHALEXIN [Concomitant]

REACTIONS (1)
  - BRACHIAL PLEXUS INJURY [None]
